FAERS Safety Report 7298802-X (Version None)
Quarter: 2011Q1

REPORT INFORMATION
  Report Type: 
  Country: None (occurrence: None)
  Receive Date: 20110208
  Receipt Date: 20110127
  Transmission Date: 20110831
  Serious: Yes (Hospitalization)
  Sender: FDA-Public Use
  Company Number: DE-001490

PATIENT
  Sex: Female

DRUGS (1)
  1. NAGLAZYME [Suspect]
     Indication: MUCOPOLYSACCHARIDOSIS VI
     Dosage: (13 VIALS INTRAVENOUS DRIP)
     Route: 041
     Dates: start: 20080101, end: 20100101

REACTIONS (1)
  - PSYCHOTIC DISORDER [None]
